FAERS Safety Report 7305315-5 (Version None)
Quarter: 2011Q1

REPORT INFORMATION
  Report Type: 
  Country: None (occurrence: None)
  Receive Date: 20110222
  Receipt Date: 20110202
  Transmission Date: 20110831
  Serious: Yes (Other)
  Sender: FDA-Public Use
  Company Number: FR-NAPPMUNDI-GBR-2011-0007710

PATIENT
  Age: 78 Year
  Sex: Female

DRUGS (2)
  1. MORPHINE SULFATE [Suspect]
     Indication: PAIN
     Dosage: UNK UNK, UNK
     Route: 048
  2. OXYCONTIN [Suspect]
     Indication: PAIN
     Dosage: UNK UNK, UNK
     Route: 048
     Dates: start: 20040101

REACTIONS (1)
  - UTERINE ENLARGEMENT [None]
